FAERS Safety Report 4720736-2 (Version None)
Quarter: 2005Q3

REPORT INFORMATION
  Report Type: 
  Country: None (occurrence: None)
  Receive Date: 20050721
  Receipt Date: 20050714
  Transmission Date: 20060218
  Serious: Yes (Other)
  Sender: FDA-Public Use
  Company Number: 200502280

PATIENT
  Age: 24 Year
  Sex: Male

DRUGS (4)
  1. AMOXICILLIN [Suspect]
     Indication: HELICOBACTER INFECTION
     Dosage: 750MG TWICE PER DAY
     Route: 048
     Dates: start: 20041015, end: 20041019
  2. CLARITHROMYCIN [Suspect]
     Indication: HELICOBACTER INFECTION
     Dosage: 400MG TWICE PER DAY
     Route: 048
     Dates: start: 20041015, end: 20041019
  3. LANSOPRAZOLE [Concomitant]
     Indication: HELICOBACTER INFECTION
     Dosage: 30MG TWICE PER DAY
     Route: 048
     Dates: start: 20041015, end: 20041202
  4. SOFALCONE [Concomitant]
     Indication: HELICOBACTER INFECTION
     Dosage: 100MG THREE TIMES PER DAY
     Route: 048
     Dates: start: 20041015, end: 20041202

REACTIONS (7)
  - ABDOMINAL PAIN [None]
  - ABDOMINAL PAIN UPPER [None]
  - ABNORMAL FAECES [None]
  - BACTERIA STOOL IDENTIFIED [None]
  - CLOSTRIDIUM COLITIS [None]
  - FAECES DISCOLOURED [None]
  - HAEMATOCHEZIA [None]
